FAERS Safety Report 6275050-3 (Version None)
Quarter: 2009Q3

REPORT INFORMATION
  Report Type: 
  Country: None (occurrence: None)
  Receive Date: 20090708
  Receipt Date: 20090708
  Transmission Date: 20100115
  Serious: No
  Sender: FDA-Public Use
  Company Number: None

PATIENT
  Age: 11 Year
  Sex: Male
  Weight: 63.5036 kg

DRUGS (1)
  1. PREDNISONE TAB [Suspect]
     Indication: SINUS OPERATION

REACTIONS (6)
  - ABNORMAL BEHAVIOUR [None]
  - AGGRESSION [None]
  - CRYING [None]
  - HEAD INJURY [None]
  - INAPPROPRIATE AFFECT [None]
  - INTENTIONAL SELF-INJURY [None]
